FAERS Safety Report 6770180-1 (Version None)
Quarter: 2010Q2

REPORT INFORMATION
  Report Type: 
  Country: None (occurrence: None)
  Receive Date: 20100615
  Receipt Date: 20100611
  Transmission Date: 20101027
  Serious: Yes (Other)
  Sender: FDA-Public Use
  Company Number: US-MERCK-1006USA01818

PATIENT
  Age: 65 Year
  Sex: Female

DRUGS (2)
  1. FOSAMAX [Suspect]
     Route: 048
     Dates: start: 20080201, end: 20080801
  2. ALENDRONATE SODIUM [Suspect]
     Route: 048
     Dates: start: 20080201, end: 20080801

REACTIONS (2)
  - BONE DENSITY DECREASED [None]
  - FEMUR FRACTURE [None]
